FAERS Safety Report 9820107 (Version 1)
Quarter: 2013Q4

REPORT INFORMATION
  Report Type: Spontaneous
  Country: US (occurrence: None)
  Receive Date: 20131021
  Receipt Date: 20131021
  Transmission Date: 20140711
  Serious: Yes (Other)
  Sender: FDA-Public Use
  Company Number: ALL1-2013-01466

PATIENT
  Age: 9 Year
  Sex: Male
  Weight: 34.9 kg

DRUGS (1)
  1. VYVANSE [Suspect]
     Indication: ATTENTION DEFICIT/HYPERACTIVITY DISORDER
     Dosage: 40 MG, 1X/DAY:QD,, ORAL
     Route: 048
     Dates: start: 201211, end: 201301

REACTIONS (2)
  - Depression [None]
  - Anxiety [None]
